FAERS Safety Report 25036163 (Version 2)
Quarter: 2025Q1

REPORT INFORMATION
  Report Type: Spontaneous
  Country: US (occurrence: US)
  Receive Date: 20250304
  Receipt Date: 20250322
  Transmission Date: 20250408
  Serious: Yes (Death, Life-Threatening, Hospitalization, Other)
  Sender: AUROBINDO
  Company Number: US-MLMSERVICE-20250210-PI405236-00106-1

PATIENT
  Age: 9 Decade
  Sex: Male

DRUGS (1)
  1. CLOPIDOGREL [Suspect]
     Active Substance: CLOPIDOGREL BISULFATE
     Indication: Angiopathy
     Route: 065

REACTIONS (9)
  - Subdural haematoma [Fatal]
  - Brain herniation [Fatal]
  - Cerebrospinal fluid leakage [Unknown]
  - Depressed level of consciousness [Unknown]
  - Acute respiratory failure [Unknown]
  - Mental status changes [Unknown]
  - Intracranial hypotension [Unknown]
  - Hypoaesthesia [Unknown]
  - Faeces discoloured [Unknown]
